FAERS Safety Report 7955726-X (Version None)
Quarter: 2011Q4

REPORT INFORMATION
  Report Type: 
  Country: None (occurrence: None)
  Receive Date: 20111204
  Receipt Date: 20100921
  Transmission Date: 20120403
  Serious: Yes (Other)
  Sender: FDA-Public Use
  Company Number: PHHY2010TW17780

PATIENT
  Sex: Female

DRUGS (3)
  1. TASIGNA [Suspect]
     Indication: CHRONIC MYELOID LEUKAEMIA
     Dosage: 800 MG, DAILY
     Route: 048
     Dates: start: 20050825, end: 20100405
  2. DASATINIB [Concomitant]
     Dosage: 100 MG, UNK
     Dates: start: 20100419
  3. HYDREA [Concomitant]
     Dosage: UNK UKN, UNK
     Dates: start: 20100323, end: 20100419

REACTIONS (3)
  - PLATELET COUNT INCREASED [None]
  - GENE MUTATION IDENTIFICATION TEST POSITIVE [None]
  - DRUG INEFFECTIVE [None]
